FAERS Safety Report 9731112 (Version 1)
Quarter: 2013Q4

REPORT INFORMATION
  Report Type: Spontaneous
  Country: SE (occurrence: SE)
  Receive Date: 20131203
  Receipt Date: 20131203
  Transmission Date: 20140711
  Serious: Yes (Other)
  Sender: FDA-Public Use
  Company Number: SE-ASTELLAS-2013EU010452

PATIENT
  Age: 70 Year
  Sex: Male

DRUGS (1)
  1. BETMIGA [Suspect]
     Indication: HYPERTONIC BLADDER
     Dosage: UNK
     Route: 065

REACTIONS (1)
  - Sleep apnoea syndrome [Unknown]
